FAERS Safety Report 5358179-3 (Version None)
Quarter: 2007Q2

REPORT INFORMATION
  Report Type: 
  Country: None (occurrence: None)
  Receive Date: 20070530
  Receipt Date: 20061120
  Transmission Date: 20071010
  Serious: Yes (Other)
  Sender: FDA-Public Use
  Company Number: US200605004852

PATIENT
  Age: 50 Year
  Sex: Female

DRUGS (4)
  1. ZYPREXA [Suspect]
     Dosage: 10 MG
     Dates: start: 19990829, end: 20030101
  2. CARBAMAZEPINE [Concomitant]
  3. FLUOXETINE [Concomitant]
  4. HYDROCHLORZIDE (HYDROCHLOROTHIAZIDE) [Concomitant]

REACTIONS (4)
  - DIABETES MELLITUS NON-INSULIN-DEPENDENT [None]
  - HYPERTENSION [None]
  - PANCREATITIS [None]
  - WEIGHT DECREASED [None]
